FAERS Safety Report 6522185-3 (Version None)
Quarter: 2009Q4

REPORT INFORMATION
  Report Type: 
  Country: None (occurrence: None)
  Receive Date: 20091222
  Receipt Date: 20091211
  Transmission Date: 20100525
  Serious: Yes (Hospitalization)
  Sender: FDA-Public Use
  Company Number: 2009SP041614

PATIENT
  Age: 32 Year
  Sex: Female
  Weight: 131.5431 kg

DRUGS (2)
  1. NASONEX [Suspect]
     Indication: MULTIPLE ALLERGIES
     Dates: start: 20090101
  2. WELLBUTRIN [Concomitant]

REACTIONS (1)
  - UNEVALUABLE EVENT [None]
